FAERS Safety Report 26206188 (Version 1)
Quarter: 2025Q4

REPORT INFORMATION
  Report Type: Spontaneous
  Country: CN (occurrence: CN)
  Receive Date: 20251229
  Receipt Date: 20251229
  Transmission Date: 20260118
  Serious: Yes (Life-Threatening, Hospitalization)
  Sender: ACCORD
  Company Number: CN-Accord-520091

PATIENT
  Age: 37 Year
  Sex: Female

DRUGS (3)
  1. ETOPOSIDE [Suspect]
     Active Substance: ETOPOSIDE
     Indication: Haematopoietic stem cell mobilisation
     Dosage: CONSOLIDATION THERAPY
     Dates: start: 20240306, end: 20240308
  2. CYTARABINE [Suspect]
     Active Substance: CYTARABINE
     Indication: Haematopoietic stem cell mobilisation
     Dosage: CONSOLIDATION THERAPY
     Dates: start: 20240306, end: 20240308
  3. RITUXIMAB [Suspect]
     Active Substance: RITUXIMAB
     Indication: Haematopoietic stem cell mobilisation
     Dosage: CONSOLIDATION THERAPY
     Dates: start: 20240226

REACTIONS (3)
  - Myelosuppression [Unknown]
  - Neutropenia [Recovered/Resolved]
  - Bacteraemia [Recovering/Resolving]

NARRATIVE: CASE EVENT DATE: 20240301
